FAERS Safety Report 17523958 (Version 1)
Quarter: 2020Q1

REPORT INFORMATION
  Report Type: Spontaneous
  Country: US (occurrence: US)
  Receive Date: 20200311
  Receipt Date: 20200311
  Transmission Date: 20200409
  Serious: Yes (Death, Hospitalization, Other)
  Sender: FDA-Public Use
  Company Number: US-APOTEX-2020AP008483

PATIENT
  Age: 74 Year
  Sex: Female

DRUGS (1)
  1. TEMOZOLOMIDE. [Suspect]
     Active Substance: TEMOZOLOMIDE
     Indication: GLIOBLASTOMA
     Dosage: UNK, FOUR CYCLES
     Route: 065

REACTIONS (5)
  - Glioblastoma [Fatal]
  - Isocitrate dehydrogenase gene mutation [Fatal]
  - Neoplasm recurrence [Fatal]
  - BRCA1 gene mutation [Fatal]
  - DNA mismatch repair protein gene mutation [Fatal]
